FAERS Safety Report 8591158 (Version 3)
Quarter: 2015Q3

REPORT INFORMATION
  Report Type: Spontaneous
  Country: US (occurrence: US)
  Receive Date: 20120601
  Receipt Date: 20150707
  Transmission Date: 20151125
  Serious: Yes (Hospitalization, Disabling, Other)
  Sender: FDA-Public Use
  Company Number: US-009507513-1205USA05004

PATIENT
  Sex: Female

DRUGS (2)
  1. FOSAMAX [Suspect]
     Active Substance: ALENDRONATE SODIUM
     Indication: OSTEOPOROSIS
     Dosage: 70 MG, UNK
     Route: 048
     Dates: start: 2000, end: 20031030
  2. FOSAMAX [Suspect]
     Active Substance: ALENDRONATE SODIUM
     Indication: BONE DISORDER
     Dosage: UNK
     Route: 048
     Dates: start: 2000, end: 200310

REACTIONS (39)
  - Groin pain [Unknown]
  - Limb deformity [Unknown]
  - Fall [Unknown]
  - Deep vein thrombosis [Unknown]
  - Pollakiuria [Unknown]
  - Incontinence [Unknown]
  - Tonsillectomy [Unknown]
  - Pain in extremity [Unknown]
  - Wrist fracture [Unknown]
  - Venous thrombosis limb [Unknown]
  - Haemorrhage [Unknown]
  - Bone disorder [Unknown]
  - Pneumonia [Unknown]
  - Osteoarthritis [Unknown]
  - Arthritis [Unknown]
  - Drug hypersensitivity [Unknown]
  - Low turnover osteopathy [Not Recovered/Not Resolved]
  - Vena cava filter insertion [Unknown]
  - Wrist fracture [Unknown]
  - Nasopharyngitis [Unknown]
  - Macular degeneration [Unknown]
  - Hypothyroidism [Unknown]
  - Open reduction of fracture [Unknown]
  - Pneumonia [Unknown]
  - Bone disorder [Unknown]
  - Abscess [Unknown]
  - Diverticulum [Unknown]
  - Gastrooesophageal reflux disease [Unknown]
  - Road traffic accident [Unknown]
  - Tooth fracture [Unknown]
  - Blood disorder [Unknown]
  - Femur fracture [Not Recovered/Not Resolved]
  - Mobility decreased [Unknown]
  - Osteopenia [Unknown]
  - Varicose vein [Unknown]
  - Osteoarthritis [Unknown]
  - Deep vein thrombosis [Unknown]
  - Cyst removal [Unknown]
  - Headache [Unknown]

NARRATIVE: CASE EVENT DATE: 2000
